FAERS Safety Report 24354249 (Version 1)
Quarter: 2024Q3

REPORT INFORMATION
  Report Type: Spontaneous
  Country: US (occurrence: US)
  Receive Date: 20240923
  Receipt Date: 20240923
  Transmission Date: 20241017
  Serious: No
  Sender: PFIZER
  Company Number: US-PFIZER INC-202400258763

PATIENT
  Age: 81 Year
  Sex: Female

DRUGS (1)
  1. LORBRENA [Suspect]
     Active Substance: LORLATINIB
     Dosage: ONE TABLET BY MOUTH, ONCE DAILY WITH OR WITHOUT FOOD
     Route: 048
     Dates: start: 20240830, end: 20240915

REACTIONS (5)
  - Drug hypersensitivity [Unknown]
  - Skin disorder [Unknown]
  - Illness [Unknown]
  - Fluid retention [Unknown]
  - Skin irritation [Unknown]
